FAERS Safety Report 7320316-9 (Version None)
Quarter: 2011Q1

REPORT INFORMATION
  Report Type: 
  Country: None (occurrence: None)
  Receive Date: 20110228
  Receipt Date: 20110216
  Transmission Date: 20110831
  Serious: Yes (Disabling)
  Sender: FDA-Public Use
  Company Number: US-ELI_LILLY_AND_COMPANY-US201005001263

PATIENT
  Sex: Male

DRUGS (10)
  1. FORTEO [Suspect]
     Indication: OSTEOPOROSIS
     Dosage: 20 UG, DAILY (1/D)
     Dates: start: 20090505, end: 20100701
  2. LYRICA [Concomitant]
     Dosage: 150 MG, UNKNOWN
  3. VENLAFAXINE [Concomitant]
     Dosage: 150 MG, UNKNOWN
  4. LISINOPRIL [Concomitant]
     Dosage: 20 MG, UNKNOWN
  5. MULTI-VITAMIN [Concomitant]
  6. DETROL LA [Concomitant]
  7. MENTAX [Concomitant]
     Dosage: 25 MG, UNKNOWN
  8. GLUCOSAMINE [Concomitant]
  9. JANUVIA [Concomitant]
     Dosage: 100 MG, UNKNOWN
  10. OMEPRAZOLE [Concomitant]
     Dosage: 20 MG, UNKNOWN

REACTIONS (11)
  - ABASIA [None]
  - NEUROPATHIC ARTHROPATHY [None]
  - FOOT DEFORMITY [None]
  - BALANCE DISORDER [None]
  - ARTHRALGIA [None]
  - WEIGHT BEARING DIFFICULTY [None]
  - OEDEMA PERIPHERAL [None]
  - PERIPHERAL ARTERIAL OCCLUSIVE DISEASE [None]
  - BONE PAIN [None]
  - PAIN IN EXTREMITY [None]
  - PAIN [None]
